FAERS Safety Report 8271857-1 (Version None)
Quarter: 2012Q2

REPORT INFORMATION
  Report Type: 
  Country: None (occurrence: None)
  Receive Date: 20120410
  Receipt Date: 20120307
  Transmission Date: 20120825
  Serious: Yes (Other)
  Sender: FDA-Public Use
  Company Number: US-ROCHE-1057887

PATIENT
  Sex: Male

DRUGS (3)
  1. RITUXAN [Suspect]
     Indication: PRODUCT USED FOR UNKNOWN INDICATION
     Route: 065
  2. TYLENOL (CAPLET) [Concomitant]
  3. BENADRYL [Concomitant]

REACTIONS (8)
  - RASH MACULAR [None]
  - EAR DISORDER [None]
  - OROPHARYNGEAL PAIN [None]
  - URTICARIA [None]
  - PRURITUS [None]
  - SWELLING [None]
  - THROAT IRRITATION [None]
  - ERYTHEMA [None]
